FAERS Safety Report 4376106-2 (Version None)
Quarter: 2004Q2

REPORT INFORMATION
  Report Type: 
  Country: None (occurrence: None)
  Receive Date: 20040611
  Receipt Date: 20040602
  Transmission Date: 20050107
  Serious: Yes (Hospitalization)
  Sender: FDA-Public Use
  Company Number: NL-GLAXOSMITHKLINE-B0334822A

PATIENT
  Age: 36 Year
  Sex: Female

DRUGS (1)
  1. BUPROPION HYDROCHLORIDE [Suspect]
     Dosage: 300MG PER DAY
     Route: 048
     Dates: start: 20020514, end: 20020605

REACTIONS (4)
  - DEPRESSION [None]
  - HYPERVENTILATION [None]
  - PYREXIA [None]
  - RASH [None]
